FAERS Safety Report 21370684 (Version 5)
Quarter: 2023Q1

REPORT INFORMATION
  Report Type: Report from Study
  Country: US (occurrence: None)
  Receive Date: 20220923
  Receipt Date: 20230207
  Transmission Date: 20230417
  Serious: Yes (Hospitalization)
  Sender: FDA-Public Use
  Company Number: US-ROCHE-3182639

PATIENT
  Age: 69 Year
  Sex: Female

DRUGS (7)
  1. ATEZOLIZUMAB [Suspect]
     Active Substance: ATEZOLIZUMAB
     Indication: Breast cancer metastatic
     Dosage: DOSE LAST STUDY DRUG ADMIN PRIOR AE IS 840 MG. START DATE OF MOST RECENT DOSE OF STUDY DRUG PRIOR TO
     Route: 041
     Dates: start: 20220624
  2. ABEMACICLIB [Suspect]
     Active Substance: ABEMACICLIB
     Indication: Breast cancer metastatic
     Dosage: DOSE LAST STUDY DRUG ADMIN PRIOR AE IS 150.START DATE OF MOST RECENT DOSE OF STUDY DRUG PRIOR TO AE
     Route: 048
     Dates: start: 20220624
  3. FULVESTRANT [Suspect]
     Active Substance: FULVESTRANT
     Indication: Breast cancer metastatic
     Dosage: DOSE LAST STUDY DRUG ADMIN PRIOR AE IS 500 MG. START DATE OF MOST RECENT DOSE OF STUDY DRUG PRIOR TO
     Route: 030
     Dates: start: 20220624
  4. LISINOPRIL [Concomitant]
     Active Substance: LISINOPRIL
     Indication: Hypertension
     Route: 048
     Dates: start: 19921117
  5. SIMVASTATIN [Concomitant]
     Active Substance: SIMVASTATIN
     Indication: Hyperlipidaemia
     Route: 048
     Dates: start: 20120626
  6. ASPIRIN [Concomitant]
     Active Substance: ASPIRIN
     Dosage: ASPIRIN LOW DOSE- DELAYED RELEASE FOR PREVENTATIVE CARDIAC CARE
     Route: 048
     Dates: start: 20210524
  7. POTASSIUM [Concomitant]
     Active Substance: POTASSIUM
     Dosage: 20 OTHER
     Route: 048
     Dates: start: 20210101

REACTIONS (1)
  - Acute kidney injury [Recovering/Resolving]

NARRATIVE: CASE EVENT DATE: 20220913
